FAERS Safety Report 7914963-0 (Version None)
Quarter: 2011Q4

REPORT INFORMATION
  Report Type: 
  Country: None (occurrence: None)
  Receive Date: 20111115
  Receipt Date: 20100617
  Transmission Date: 20120403
  Serious: Yes (Other)
  Sender: FDA-Public Use
  Company Number: GB-ROCHE-1012352

PATIENT
  Sex: Female

DRUGS (8)
  1. VENTOLIN [Concomitant]
  2. FLUTICASONE PROPIONATE [Concomitant]
  3. ATROVENT [Concomitant]
  4. THEOPHYLLINE [Concomitant]
  5. BETA BLOCKING AGENTS [Concomitant]
  6. XOLAIR [Suspect]
     Indication: ASTHMA
     Dates: start: 20070513
  7. LEUKOTRIENE ANTAGONIST [Concomitant]
  8. FLUTICASONE PROPIONATE/SALMETEROL [Concomitant]

REACTIONS (1)
  - ASTHMA [None]
